FAERS Safety Report 4830314-2 (Version None)
Quarter: 2005Q4

REPORT INFORMATION
  Report Type: 
  Country: None (occurrence: None)
  Receive Date: 20051117
  Receipt Date: 20051024
  Transmission Date: 20060501
  Serious: Yes (Death)
  Sender: FDA-Public Use
  Company Number: JP-BRISTOL-MYERS SQUIBB COMPANY-13154646

PATIENT
  Age: 75 Year
  Sex: Male

DRUGS (1)
  1. TAXOL [Suspect]
     Indication: BREAST CANCER MALE
     Route: 042
     Dates: start: 20050829, end: 20050912

REACTIONS (1)
  - INTERSTITIAL LUNG DISEASE [None]
